FAERS Safety Report 4546111-1 (Version None)
Quarter: 2005Q1

REPORT INFORMATION
  Report Type: 
  Country: None (occurrence: None)
  Receive Date: 20050105
  Receipt Date: 20050105
  Transmission Date: 20050727
  Serious: No
  Sender: FDA-Public Use
  Company Number: None

PATIENT
  Sex: Male
  Weight: 73.3 kg

DRUGS (1)
  1. UNASYN [Suspect]
     Indication: PNEUMONIA
     Dosage: 3 GRAMS   Q6H   INTRAVENOU
     Route: 042
     Dates: start: 20041223, end: 20041228

REACTIONS (3)
  - HAEMOLYTIC ANAEMIA [None]
  - HAPTOGLOBIN INCREASED [None]
  - RETICULOCYTE COUNT INCREASED [None]
